FAERS Safety Report 13632378 (Version 1)
Quarter: 2017Q2

REPORT INFORMATION
  Report Type: Spontaneous
  Country: US (occurrence: US)
  Receive Date: 20170608
  Receipt Date: 20170608
  Transmission Date: 20170830
  Serious: Yes (Hospitalization)
  Sender: FDA-Public Use
  Company Number: US-CELGENEUS-USA-20170601254

PATIENT
  Sex: Female

DRUGS (1)
  1. THALOMID [Suspect]
     Active Substance: THALIDOMIDE
     Indication: PYODERMA GANGRENOSUM
     Dosage: 10 MILLIGRAM
     Route: 048
     Dates: start: 20160220

REACTIONS (1)
  - Cerebrovascular accident [Not Recovered/Not Resolved]
